FAERS Safety Report 7751011-X (Version None)
Quarter: 2011Q3

REPORT INFORMATION
  Report Type: 
  Country: None (occurrence: None)
  Receive Date: 20110914
  Receipt Date: 20110830
  Transmission Date: 20111222
  Serious: Yes (Hospitalization)
  Sender: FDA-Public Use
  Company Number: TW-BAYER-2011-039383

PATIENT
  Age: 39 Year
  Sex: Male
  Weight: 60 kg

DRUGS (21)
  1. MEK INHIBITOR (DIHYDROXYPROP-DIFLU-METHOXYPHEN-CYCLOPROPA-SULFAMI) [Suspect]
     Indication: HEPATIC NEOPLASM MALIGNANT
     Dosage: 50 MG, BID
     Route: 048
     Dates: start: 20110401, end: 20110403
  2. SORAFENIB (RAF KINASE INHIBITOR) [Suspect]
     Indication: HEPATIC NEOPLASM MALIGNANT
     Dosage: UNK UNK, UNK
     Route: 048
  3. DEXTROSE ELECTROLYTE DM 3AG [Concomitant]
     Indication: DIARRHOEA
     Dosage: DAILY DOSE 800 ML
     Route: 042
     Dates: start: 20110406, end: 20110406
  4. ALDACTONE [Concomitant]
     Indication: MITRAL VALVE REPLACEMENT
     Dosage: 50 MG, QD
     Route: 048
     Dates: start: 20101203, end: 20110408
  5. XANAX [Concomitant]
     Indication: MITRAL VALVE REPLACEMENT
     Dosage: 0.25 MG, QD
     Route: 048
     Dates: start: 20041207, end: 20110408
  6. CHLORAMPHENICOL [Concomitant]
     Indication: RASH
     Dosage: 5 G/TUBE
     Route: 061
     Dates: start: 20110408
  7. RINDERON V [Concomitant]
     Indication: RASH
     Dosage: 0.06%
     Route: 061
     Dates: start: 20110408
  8. BUMETANIDE [Concomitant]
     Indication: MITRAL VALVE REPLACEMENT
     Dosage: 0.5 MG, QD
     Route: 048
     Dates: start: 20101118, end: 20110408
  9. BUMETANIDE [Concomitant]
     Indication: AORTIC VALVE REPAIR
  10. LOPERAMIDE HCL [Concomitant]
     Indication: DIARRHOEA
     Dosage: 2 MG/ TABLET
     Route: 048
     Dates: start: 20110425, end: 20110425
  11. MEK INHIBITOR (DIHYDROXYPROP-DIFLU-METHOXYPHEN-CYCLOPROPA-SULFAMI) [Suspect]
     Dosage: 50 MG, BID
     Route: 048
     Dates: start: 20110422, end: 20110424
  12. LANOXIN [Concomitant]
     Indication: MITRAL VALVE REPLACEMENT
     Dosage: 0.25 MG, QD
     Route: 048
     Dates: start: 20101119, end: 20110408
  13. LANOXIN [Concomitant]
     Indication: AORTIC VALVE REPAIR
  14. COUMADIN [Concomitant]
     Indication: AORTIC VALVE REPAIR
  15. XANAX [Concomitant]
     Indication: AORTIC VALVE REPAIR
  16. ALDACTONE [Concomitant]
     Indication: AORTIC VALVE REPAIR
  17. COUMADIN [Concomitant]
     Indication: MITRAL VALVE REPLACEMENT
     Dosage: 1.5 MG, QD
     Dates: start: 20041207, end: 20110408
  18. MULTI-VITAMIN [Concomitant]
     Indication: DIARRHOEA
     Dosage: DAILY DOSE 20 ML
     Route: 042
     Dates: start: 20110406, end: 20110406
  19. MEK INHIBITOR (DIHYDROXYPROP-DIFLU-METHOXYPHEN-CYCLOPROPA-SULFAMI) [Suspect]
     Dosage: 50 MG, BID
     Route: 048
     Dates: start: 20110428, end: 20110506
  20. KAOLIN W/PECTIN [Concomitant]
     Indication: DIARRHOEA
     Dosage: DAILY DOSE 10 ML
     Route: 048
     Dates: start: 20110509, end: 20110510
  21. GLYPRESSINE [Concomitant]
     Indication: OESOPHAGEAL VARICES HAEMORRHAGE
     Dosage: DAILY DOSE 4 MG
     Route: 042
     Dates: start: 20110408, end: 20110413

REACTIONS (2)
  - OESOPHAGEAL VARICES HAEMORRHAGE [None]
  - VENTRICULAR TACHYCARDIA [None]
